FAERS Safety Report 13225471 (Version 1)
Quarter: 2017Q1

REPORT INFORMATION
  Report Type: Spontaneous
  Country: NO (occurrence: NO)
  Receive Date: 20170213
  Receipt Date: 20170213
  Transmission Date: 20170428
  Serious: Yes (Other)
  Sender: FDA-Public Use
  Company Number: NO-SUN PHARMACEUTICAL INDUSTRIES LTD-2017RR-133006

PATIENT
  Age: 41 Year
  Sex: Female

DRUGS (2)
  1. QUETIAPINE. [Suspect]
     Active Substance: QUETIAPINE
     Indication: PRODUCT USED FOR UNKNOWN INDICATION
     Dosage: UNK
     Route: 065
  2. SEROQUEL [Suspect]
     Active Substance: QUETIAPINE FUMARATE
     Indication: PRODUCT USED FOR UNKNOWN INDICATION
     Dosage: UNK
     Route: 065

REACTIONS (17)
  - Delusion [Unknown]
  - Dizziness [Unknown]
  - Muscle spasms [Recovered/Resolved]
  - Gait disturbance [Unknown]
  - Hypokinesia [Unknown]
  - Insomnia [Unknown]
  - Photopsia [Unknown]
  - Discomfort [Recovered/Resolved]
  - Dysphagia [Recovering/Resolving]
  - Neck pain [Recovering/Resolving]
  - Weight increased [Unknown]
  - Hyperphagia [Unknown]
  - Dyspnoea exertional [Recovered/Resolved]
  - Joint lock [Recovered/Resolved]
  - Anxiety [Unknown]
  - Hallucination, visual [Unknown]
  - Oedema peripheral [Unknown]
